FAERS Safety Report 17619553 (Version 1)
Quarter: 2020Q2

REPORT INFORMATION
  Report Type: Spontaneous
  Country: DE (occurrence: DE)
  Receive Date: 20200403
  Receipt Date: 20200403
  Transmission Date: 20200713
  Serious: Yes (Other)
  Sender: FDA-Public Use
  Company Number: DE-TERSERA THERAPEUTICS LLC-2020TRS000796

PATIENT

DRUGS (2)
  1. ZOLADEX [Suspect]
     Active Substance: GOSERELIN ACETATE
     Indication: ABDOMINAL PAIN LOWER
  2. ZOLADEX [Suspect]
     Active Substance: GOSERELIN ACETATE
     Indication: CYST
     Dosage: UNK
     Route: 058

REACTIONS (2)
  - Epilepsy [Unknown]
  - Cerebrovascular accident [Unknown]
